FAERS Safety Report 9676363 (Version 1)
Quarter: 2013Q4

REPORT INFORMATION
  Report Type: Spontaneous
  Country: US (occurrence: None)
  Receive Date: 20131106
  Receipt Date: 20131106
  Transmission Date: 20140711
  Serious: Yes (Other)
  Sender: FDA-Public Use
  Company Number: HA13-378-AE

PATIENT
  Age: 14 Year
  Sex: Male
  Weight: 51.71 kg

DRUGS (3)
  1. SMZ/TMP [Suspect]
     Indication: INFLAMMATION
     Route: 048
     Dates: start: 20130925
  2. SMZ/TMP [Suspect]
     Indication: PAIN
     Route: 048
     Dates: start: 20130925
  3. IBUPROFEN [Concomitant]

REACTIONS (6)
  - Condition aggravated [None]
  - Dysstasia [None]
  - Abdominal pain lower [None]
  - Groin pain [None]
  - Lymphadenopathy [None]
  - Abdominal pain upper [None]
